FAERS Safety Report 5886989-2 (Version None)
Quarter: 2008Q3

REPORT INFORMATION
  Report Type: 
  Country: None (occurrence: None)
  Receive Date: 20080917
  Receipt Date: 20080910
  Transmission Date: 20090109
  Serious: Yes (Death)
  Sender: FDA-Public Use
  Company Number: US-ROXANE LABORATORIES, INC.-2008-RO-00016RO

PATIENT
  Age: 9 Month
  Sex: Male

DRUGS (1)
  1. METHADONE HCL [Suspect]
     Route: 048

REACTIONS (2)
  - DEATH [None]
  - RESPIRATORY ARREST [None]
